FAERS Safety Report 7447198-9 (Version None)
Quarter: 2011Q2

REPORT INFORMATION
  Report Type: 
  Country: None (occurrence: None)
  Receive Date: 20110429
  Receipt Date: 20101203
  Transmission Date: 20111010
  Serious: No
  Sender: FDA-Public Use
  Company Number: US-ASTRAZENECA-2010SE57700

PATIENT
  Sex: Female

DRUGS (4)
  1. MEDICATIONS FOR HIGH BLOOD PRESSURE [Concomitant]
  2. NEXIUM [Suspect]
     Indication: GASTROOESOPHAGEAL REFLUX DISEASE
     Route: 048
     Dates: start: 20100401
  3. MEDICATIONS FOR HIGH CHOLESTEROL [Concomitant]
  4. MEDICATIONS FOR DIABETES [Concomitant]

REACTIONS (3)
  - APHAGIA [None]
  - DRUG DOSE OMISSION [None]
  - VOMITING [None]
